FAERS Safety Report 14319309 (Version 2)
Quarter: 2018Q2

REPORT INFORMATION
  Report Type: Report from Study
  Country: US (occurrence: US)
  Receive Date: 20171222
  Receipt Date: 20180627
  Transmission Date: 20180711
  Serious: Yes (Other)
  Sender: FDA-Public Use
  Company Number: US-MALLINCKRODT-T201705194

PATIENT
  Sex: Female
  Weight: 84 kg

DRUGS (1)
  1. REPOSITORY CORTICOTROPIN INJECTION [Suspect]
     Active Substance: CORTICOTROPIN
     Indication: SYSTEMIC LUPUS ERYTHEMATOSUS
     Dosage: 0.5ML (40 UNITS), EVERY 3 DAYS
     Route: 030
     Dates: end: 2018

REACTIONS (9)
  - Pain [Unknown]
  - Musculoskeletal discomfort [Unknown]
  - Hypersensitivity [Unknown]
  - Feeling abnormal [Unknown]
  - Malaise [Unknown]
  - Drug dependence [Unknown]
  - Urticaria [Unknown]
  - Muscle spasms [Not Recovered/Not Resolved]
  - Thinking abnormal [Unknown]
